FAERS Safety Report 7911772-3 (Version None)
Quarter: 2011Q4

REPORT INFORMATION
  Report Type: 
  Country: None (occurrence: None)
  Receive Date: 20111114
  Receipt Date: 20111114
  Transmission Date: 20120403
  Serious: Yes (Other)
  Sender: FDA-Public Use
  Company Number: None

PATIENT
  Age: 38 Year
  Sex: Female
  Weight: 49.895 kg

DRUGS (7)
  1. MVM [Concomitant]
  2. EVOXAC [Concomitant]
  3. TEMAZEPAM [Concomitant]
  4. YAZ [Suspect]
     Indication: HORMONE LEVEL ABNORMAL
     Dosage: ONE
     Route: 048
     Dates: start: 20090815, end: 20111015
  5. YAZ [Suspect]
     Indication: ACNE
     Dosage: ONE
     Route: 048
     Dates: start: 20090815, end: 20111015
  6. IBUPROFEN (ADVIL) [Concomitant]
  7. LUNESTA [Concomitant]

REACTIONS (6)
  - FATIGUE [None]
  - CERVICAL DYSPLASIA [None]
  - ARTHRALGIA [None]
  - CONNECTIVE TISSUE DISORDER [None]
  - INSOMNIA [None]
  - ACTIVITIES OF DAILY LIVING IMPAIRED [None]
